FAERS Safety Report 10949041 (Version 2)
Quarter: 2015Q2

REPORT INFORMATION
  Report Type: Spontaneous
  Country: US (occurrence: US)
  Receive Date: 20150324
  Receipt Date: 20150505
  Transmission Date: 20150821
  Serious: Yes (Other)
  Sender: FDA-Public Use
  Company Number: US-ASTRAZENECA-2015SE24851

PATIENT
  Age: 54 Year
  Sex: Female
  Weight: 100.7 kg

DRUGS (31)
  1. GLIMEPERIDE [Concomitant]
     Active Substance: GLIMEPIRIDE
     Indication: DIABETES MELLITUS
  2. VERIO STRIP [Concomitant]
  3. METFORMIN [Concomitant]
     Active Substance: METFORMIN HYDROCHLORIDE
     Indication: DIABETES MELLITUS
     Route: 048
  4. ENBREL [Concomitant]
     Active Substance: ETANERCEPT
     Indication: PSORIASIS
     Dosage: 50 MG/ML (0.98 ML)
     Route: 058
  5. FISH OIL [Concomitant]
     Active Substance: FISH OIL
     Dosage: 200 MG-144 MG-216 MG
  6. NYSTATIN-TRIAMCINOLONE [Concomitant]
     Dosage: 100,000 UNIT/G-0.1 % TOPICAL CREAM PRN
     Route: 061
  7. TRAMADOL [Concomitant]
     Active Substance: TRAMADOL
     Dosage: 1 TO 2 TABLETS BYMOUTH 3 TIMES A DAY AS NEEDED FOR PAIN
  8. FARXIGA [Suspect]
     Active Substance: DAPAGLIFLOZIN PROPANEDIOL
     Indication: TYPE 2 DIABETES MELLITUS
     Route: 048
     Dates: start: 20141028, end: 20141105
  9. ALBUTEROL SULFATE. [Concomitant]
     Active Substance: ALBUTEROL SULFATE
     Dosage: 2.5 MG/3 -ML (0.083 %) SOLUTION FOR NEBULIZTION
  10. INSULIN [Concomitant]
     Active Substance: INSULIN NOS
     Dosage: 1/2 ML 30 X 1/2, AS DIRECTED FIVE TIMES DAILY
  11. CLOBETASOL [Concomitant]
     Active Substance: CLOBETASOL
     Route: 061
  12. BUSPIRONE [Concomitant]
     Active Substance: BUSPIRONE HYDROCHLORIDE
     Route: 048
  13. COQ10 [Concomitant]
     Active Substance: UBIDECARENONE
  14. FENOFIBRATE. [Concomitant]
     Active Substance: FENOFIBRATE
  15. LISINOPRIL. [Concomitant]
     Active Substance: LISINOPRIL
  16. NORTRIPTYLINE [Concomitant]
     Active Substance: NORTRIPTYLINE
     Dosage: 1 DF AT NIGHT, INJECT 18 UNITS SUBCUTANEOUSLY BEFORE BREAKFAST AND 20 UNITS BEFORE LUNCH
  17. GABAPENTIN. [Concomitant]
     Active Substance: GABAPENTIN
     Route: 048
  18. HYDROXYZINE PAMOATE. [Concomitant]
     Active Substance: HYDROXYZINE PAMOATE
     Dosage: 1 TO 2 CAPSULES BY MOUTH EVERY 4 HOURS AS NEEDED
  19. MULTIVITAMIN [Concomitant]
     Active Substance: VITAMINS
  20. LORATADINE. [Concomitant]
     Active Substance: LORATADINE
  21. MECLIZINE [Concomitant]
     Active Substance: MECLIZINE\MECLIZINE HYDROCHLORIDE
     Dosage: 1 TABLET BY MOUTH TWICE A DAY
  22. NEXIUM [Concomitant]
     Active Substance: ESOMEPRAZOLE MAGNESIUM
     Route: 048
  23. WELCHOL [Concomitant]
     Active Substance: COLESEVELAM HYDROCHLORIDE
     Route: 048
  24. CRANBERRRY [Concomitant]
  25. LEVEMIR [Concomitant]
     Active Substance: INSULIN DETEMIR
     Dosage: 40 UNITS EVERY MORNING AND 50 UNITS AT BEDTIME
     Route: 058
  26. LIBRAX [Concomitant]
     Active Substance: CHLORDIAZEPOXIDE HYDROCHLORIDE\CLIDINIUM BROMIDE
     Dosage: 5MG-G-2.5 MG CAPSULE, 1 CAPSULE(S) EVERY 4 HOURS BY ORAL ROUTE
  27. MILK THISTLE [Concomitant]
     Active Substance: MILK THISTLE
  28. VITAMIN D3 [Concomitant]
     Active Substance: CHOLECALCIFEROL
     Dosage: 1 CAPSULE PER DAY-1 000 I U^S
  29. ASPIRIN. [Concomitant]
     Active Substance: ASPIRIN
  30. ESTROVEN [Concomitant]
     Active Substance: DIETARY SUPPLEMENT
  31. DELICA LANCETS [Concomitant]
     Dosage: 4 TIMES A DAY

REACTIONS (3)
  - Psoriasis [Not Recovered/Not Resolved]
  - Blood creatinine increased [Unknown]
  - Blood albumin increased [Unknown]
